FAERS Safety Report 6938230-7 (Version None)
Quarter: 2010Q3

REPORT INFORMATION
  Report Type: 
  Country: None (occurrence: None)
  Receive Date: 20100818
  Receipt Date: 20100812
  Transmission Date: 20110219
  Serious: Yes (Hospitalization)
  Sender: FDA-Public Use
  Company Number: 2010SP030704

PATIENT
  Age: 36 Year
  Sex: Female
  Weight: 93 kg

DRUGS (3)
  1. CHORIONIC GONADOTROPIN [Suspect]
     Indication: OVULATION INDUCTION
     Dosage: 5000 IU;IM
     Route: 030
  2. CHORIONIC GONADOTROPIN [Suspect]
     Indication: OVULATION INDUCTION
  3. HUMAN MENOPAUSAL GONADOTROPIN (OTHER MANUFACTURER (GONADOTROPINS) [Suspect]
     Indication: OVULATION INDUCTION

REACTIONS (1)
  - ABDOMINAL PAIN [None]
